FAERS Safety Report 20982337 (Version 1)
Quarter: 2022Q2

REPORT INFORMATION
  Report Type: Spontaneous
  Country: ES (occurrence: ES)
  Receive Date: 20220620
  Receipt Date: 20220620
  Transmission Date: 20220720
  Serious: Yes (Hospitalization, Other)
  Sender: FDA-Public Use
  Company Number: None

PATIENT
  Age: 84 Year
  Sex: Male

DRUGS (5)
  1. FUROSEMIDE [Suspect]
     Active Substance: FUROSEMIDE
     Indication: Cardiac failure
     Dosage: 10.0 MG C/6 HORAS / 10.0 MG EVERY 6 HOURS
     Route: 042
     Dates: start: 20210130, end: 20210204
  2. OMEPRAZOLE MYLAN 20 mg HARD GASTRO-RESISTANT CAPSULES EFG, 56 capsules [Concomitant]
     Indication: Myocardial ischaemia
     Dosage: 20.0 MG A-DE / 20.0 MG BEFORE BREAKFAST
     Route: 048
     Dates: start: 20200906
  3. ASPIRIN [Concomitant]
     Active Substance: ASPIRIN
     Indication: Cardiac failure
     Dosage: 100.0 MG DE / 100.0 MG BREAKFAST
     Route: 048
     Dates: start: 20180410
  4. SPIRIVA RESPIMAT 2,5 microgramos SOLUCION PARA INHALACION, 1 inhalador [Concomitant]
     Indication: Bronchitis
     Dosage: 2.0 PUFF C/24 H / 2.0 PUFF EVERY/24 H
     Route: 050
     Dates: start: 20200718
  5. RELVAR ELLIPTA 92 MCG/22 MCG POLVO PARA INHALACION (UNIDODIS) 30 dosis [Concomitant]
     Indication: Bronchitis
     Dosage: 1.0 PUFF C/24 H / 1.0 PUFF EVERY/24 H
     Route: 050
     Dates: start: 20200718

REACTIONS (1)
  - Acute kidney injury [Recovered/Resolved]

NARRATIVE: CASE EVENT DATE: 20210204
